FAERS Safety Report 7753964-2 (Version None)
Quarter: 2011Q3

REPORT INFORMATION
  Report Type: 
  Country: None (occurrence: None)
  Receive Date: 20110915
  Receipt Date: 20110829
  Transmission Date: 20111222
  Serious: Yes (Other)
  Sender: FDA-Public Use
  Company Number: PT-MYLANLABS-2011S1018065

PATIENT
  Age: 48 Year
  Sex: Female
  Weight: 63 kg

DRUGS (2)
  1. PAROXETINE HCL [Suspect]
     Indication: DEPRESSION
     Route: 048
     Dates: start: 20110803, end: 20110805
  2. ALPRAZOLAM [Concomitant]
     Indication: ANXIETY
     Route: 048
     Dates: start: 20090101

REACTIONS (4)
  - SYNCOPE [None]
  - DIZZINESS [None]
  - FEELING HOT [None]
  - VOMITING [None]
